FAERS Safety Report 4416026-8 (Version None)
Quarter: 2004Q3

REPORT INFORMATION
  Report Type: 
  Country: None (occurrence: None)
  Receive Date: 20040802
  Receipt Date: 20040720
  Transmission Date: 20050211
  Serious: Yes (Other)
  Sender: FDA-Public Use
  Company Number: 2004PL000043

PATIENT
  Age: 16 Year
  Sex: Male
  Weight: 75 kg

DRUGS (12)
  1. AZATHIOPRINE [Suspect]
     Indication: WEGENER'S GRANULOMATOSIS
     Dosage: ORAL
     Route: 048
  2. MYCOPHENOLATE MOFETIL (MYCOPHENOLATE MOFETIL) [Suspect]
     Indication: WEGENER'S GRANULOMATOSIS
     Dosage: ORAL
     Route: 048
  3. FERROUS SULFATE TAB [Concomitant]
  4. PREDNISONE [Concomitant]
  5. AMLODIPINE [Concomitant]
  6. RANITIDINE [Concomitant]
  7. OMPERAZOLE [Concomitant]
  8. DOMPERIDONE [Concomitant]
  9. CALCIUM CARBONATE [Concomitant]
  10. LOVASTATIN [Concomitant]
  11. NADOLOL [Concomitant]
  12. SEVELAMER [Concomitant]

REACTIONS (6)
  - GASTROINTESTINAL HAEMORRHAGE [None]
  - HAEMODIALYSIS [None]
  - PERITONEAL DIALYSIS [None]
  - PERITONITIS [None]
  - THERAPEUTIC RESPONSE DECREASED [None]
  - WHITE BLOOD CELL COUNT INCREASED [None]
